FAERS Safety Report 7138446-3 (Version None)
Quarter: 2010Q4

REPORT INFORMATION
  Report Type: 
  Country: None (occurrence: None)
  Receive Date: 20101206
  Receipt Date: 20101125
  Transmission Date: 20110411
  Serious: Yes (Other)
  Sender: FDA-Public Use
  Company Number: PHHO2010FR17847

PATIENT
  Sex: Male
  Weight: 103 kg

DRUGS (2)
  1. FTY 720 FTY+ [Suspect]
     Indication: MULTIPLE SCLEROSIS
     Dosage: 0.5 MG, QD
     Route: 048
     Dates: start: 20080506
  2. DIOSMINE [Concomitant]
     Indication: SENSATION OF HEAVINESS

REACTIONS (2)
  - BASAL CELL CARCINOMA [None]
  - SKIN NEOPLASM EXCISION [None]
